FAERS Safety Report 5673972-5 (Version None)
Quarter: 2008Q1

REPORT INFORMATION
  Report Type: 
  Country: None (occurrence: None)
  Receive Date: 20080317
  Receipt Date: 20080306
  Transmission Date: 20080703
  Serious: Yes (Other)
  Sender: FDA-Public Use
  Company Number: 08H-153-0313978-00

PATIENT
  Age: 13 Year
  Sex: Male

DRUGS (1)
  1. VANCOMYCIN HYDROCHLORIDE [Suspect]
     Indication: SKIN TOXICITY
     Dosage: 40 MG/KG,

REACTIONS (4)
  - DRUG TOXICITY [None]
  - LUPUS NEPHRITIS [None]
  - RENAL FAILURE ACUTE [None]
  - RENAL TUBULAR NECROSIS [None]
